FAERS Safety Report 16297575 (Version 1)
Quarter: 2019Q2

REPORT INFORMATION
  Report Type: Spontaneous
  Country: US (occurrence: US)
  Receive Date: 20190510
  Receipt Date: 20190510
  Transmission Date: 20190711
  Serious: No
  Sender: FDA-Public Use
  Company Number: US-BIOGEN-2019BI00735189

PATIENT
  Sex: Female
  Weight: 95.34 kg

DRUGS (4)
  1. TECFIDERA [Suspect]
     Active Substance: DIMETHYL FUMARATE
     Indication: MULTIPLE SCLEROSIS
     Route: 048
     Dates: start: 20190415
  2. LYRICA [Concomitant]
     Active Substance: PREGABALIN
     Route: 065
  3. PROMETHAZINE [Concomitant]
     Active Substance: PROMETHAZINE\PROMETHAZINE HYDROCHLORIDE
     Route: 065
  4. BACLOFEN. [Concomitant]
     Active Substance: BACLOFEN
     Route: 065

REACTIONS (1)
  - Pneumonia [Unknown]
